FAERS Safety Report 9253117 (Version 1)
Quarter: 2013Q2

REPORT INFORMATION
  Report Type: Spontaneous
  Country: US (occurrence: US)
  Receive Date: 20130424
  Receipt Date: 20130424
  Transmission Date: 20140414
  Serious: No
  Sender: FDA-Public Use
  Company Number: US-PFIZER INC-2013127511

PATIENT
  Age: 50 Year
  Sex: Female
  Weight: 136.05 kg

DRUGS (1)
  1. LYRICA [Suspect]
     Indication: DIABETIC NEUROPATHY
     Dosage: 75 MG, 2X/DAY
     Route: 048
     Dates: start: 2007, end: 20130322

REACTIONS (2)
  - Rash macular [Unknown]
  - Pruritus [Unknown]
